FAERS Safety Report 16756343 (Version 1)
Quarter: 2019Q4

REPORT INFORMATION
  Report Type: Spontaneous
  Country: US (occurrence: US)
  Receive Date: 20190829
  Receipt Date: 20190829
  Transmission Date: 20200122
  Serious: No
  Sender: FDA-Public Use
  Company Number: None

PATIENT
  Age: 33 Year
  Sex: Female
  Weight: 54 kg

DRUGS (2)
  1. PROZAC [Suspect]
     Active Substance: FLUOXETINE HYDROCHLORIDE
     Indication: ANXIETY
     Dosage: ?          QUANTITY:1 CAPSULE(S);?
     Route: 048
     Dates: start: 20190717, end: 20190827
  2. ATIVAN 2 DAILY OF 0.5 MG [Concomitant]

REACTIONS (9)
  - Diarrhoea [None]
  - Abdominal pain upper [None]
  - Faeces discoloured [None]
  - Metabolic disorder [None]
  - Hyperhidrosis [None]
  - Fatigue [None]
  - Malaise [None]
  - Suicidal ideation [None]
  - Vomiting [None]

NARRATIVE: CASE EVENT DATE: 20190828
